FAERS Safety Report 6519075-9 (Version None)
Quarter: 2009Q4

REPORT INFORMATION
  Report Type: 
  Country: None (occurrence: None)
  Receive Date: 20091228
  Receipt Date: 20091216
  Transmission Date: 20100525
  Serious: Yes (Other)
  Sender: FDA-Public Use
  Company Number: JP-PFIZER INC-2009312023

PATIENT
  Age: 61 Year
  Sex: Female
  Weight: 58 kg

DRUGS (3)
  1. METHYLPREDNISOLONE AND METHYLPREDNISOLONE ACETATE AND METHYLPREDNISOLO [Suspect]
     Indication: ANAPHYLACTOID REACTION
  2. PREDNISOLONE AND PREDNISOLONE STEAGLATE [Suspect]
     Indication: ANAPHYLACTOID REACTION
     Dates: start: 20080201
  3. INSULIN ASPART [Concomitant]
     Dates: start: 20080101

REACTIONS (3)
  - DEEP VEIN THROMBOSIS [None]
  - DIABETES MELLITUS [None]
  - PULMONARY EMBOLISM [None]
